FAERS Safety Report 18975503 (Version 1)
Quarter: 2021Q1

REPORT INFORMATION
  Report Type: Other
  Country: CA (occurrence: CA)
  Receive Date: 20210306
  Receipt Date: 20210306
  Transmission Date: 20210420
  Serious: Yes (Other)
  Sender: FDA-Public Use
  Company Number: CA-CELLTRION INC.-2021CA002635

PATIENT

DRUGS (5)
  1. LAPELGA [Concomitant]
     Active Substance: PEGFILGRASTIM
     Dosage: 1 EVERY 3 WEEKS
     Route: 065
  2. CARBOPLATIN. [Suspect]
     Active Substance: CARBOPLATIN
     Indication: TRIPLE POSITIVE BREAST CANCER
     Dosage: 1 EVERY 3 WEEKS
     Route: 042
  3. DOCETAXEL. [Suspect]
     Active Substance: DOCETAXEL
     Indication: TRIPLE POSITIVE BREAST CANCER
     Dosage: 1 EVERY 3 WEEKS
     Route: 042
  4. CETIRIZINE [Concomitant]
     Active Substance: CETIRIZINE HYDROCHLORIDE
     Indication: RHINORRHOEA
  5. TRASTUZUMAB (UNKNOWN) [Suspect]
     Active Substance: TRASTUZUMAB
     Indication: TRIPLE POSITIVE BREAST CANCER
     Dosage: 1 EVERY 3 WEEKS
     Route: 041

REACTIONS (12)
  - Thrombosis [Not Recovered/Not Resolved]
  - Diarrhoea [Not Recovered/Not Resolved]
  - Blood creatinine increased [Not Recovered/Not Resolved]
  - Blood glucose increased [Not Recovered/Not Resolved]
  - Seasonal allergy [Not Recovered/Not Resolved]
  - Peripheral swelling [Not Recovered/Not Resolved]
  - Contusion [Not Recovered/Not Resolved]
  - Fall [Not Recovered/Not Resolved]
  - Weight fluctuation [Not Recovered/Not Resolved]
  - Heart rate increased [Not Recovered/Not Resolved]
  - White blood cell count increased [Not Recovered/Not Resolved]
  - Dyspnoea [Not Recovered/Not Resolved]
